FAERS Safety Report 7027380-5 (Version None)
Quarter: 2010Q4

REPORT INFORMATION
  Report Type: 
  Country: None (occurrence: None)
  Receive Date: 20101004
  Receipt Date: 20101001
  Transmission Date: 20110411
  Serious: Yes (Life-Threatening, Other)
  Sender: FDA-Public Use
  Company Number: PHHY2010IT62903

PATIENT
  Sex: Female

DRUGS (3)
  1. TEGRETOL [Suspect]
     Dosage: 30 POSOLOGICAL UNIT
     Route: 048
     Dates: start: 20100917
  2. KEPPRA [Suspect]
     Dosage: 40 POSOLOGICAL UNIT
     Dates: start: 20100917
  3. DELORAZEPAM [Suspect]
     Dosage: 1 MG/ML, UNK
     Dates: start: 20100917

REACTIONS (13)
  - ALANINE AMINOTRANSFERASE INCREASED [None]
  - ANTICONVULSANT DRUG LEVEL INCREASED [None]
  - ASPARTATE AMINOTRANSFERASE INCREASED [None]
  - BLOOD AMYLASE INCREASED [None]
  - BLOOD CREATINE PHOSPHOKINASE INCREASED [None]
  - BLOOD PRESSURE DECREASED [None]
  - CARBON DIOXIDE ABNORMAL [None]
  - COMA [None]
  - INTENTIONAL OVERDOSE [None]
  - INTENTIONAL SELF-INJURY [None]
  - METABOLIC ACIDOSIS [None]
  - MYOGLOBIN BLOOD INCREASED [None]
  - RHABDOMYOLYSIS [None]
